FAERS Safety Report 6342882-2 (Version None)
Quarter: 2009Q3

REPORT INFORMATION
  Report Type: 
  Country: None (occurrence: None)
  Receive Date: 20090908
  Receipt Date: 20090828
  Transmission Date: 20100115
  Serious: Yes (Death)
  Sender: FDA-Public Use
  Company Number: US-ROCHE-653719

PATIENT
  Sex: Female
  Weight: 65.8 kg

DRUGS (1)
  1. CAPECITABINE [Suspect]
     Indication: BREAST CANCER
     Route: 048
     Dates: start: 20080527, end: 20090815

REACTIONS (2)
  - BREAST CANCER [None]
  - DISEASE PROGRESSION [None]
